FAERS Safety Report 24305215 (Version 1)
Quarter: 2024Q3

REPORT INFORMATION
  Report Type: Spontaneous
  Country: ES (occurrence: ES)
  Receive Date: 20240911
  Receipt Date: 20240911
  Transmission Date: 20241016
  Serious: Yes (Death)
  Sender: ABBVIE
  Company Number: ES-PFIZER INC-202400251523

PATIENT
  Sex: Female

DRUGS (2)
  1. AVIBACTAM SODIUM\CEFTAZIDIME [Suspect]
     Active Substance: AVIBACTAM SODIUM\CEFTAZIDIME
     Indication: Sepsis
     Route: 065
  2. AZTREONAM [Suspect]
     Active Substance: AZTREONAM
     Indication: Sepsis
     Route: 065

REACTIONS (2)
  - Death [Fatal]
  - Off label use [Unknown]
